FAERS Safety Report 8238933-0 (Version None)
Quarter: 2012Q1

REPORT INFORMATION
  Report Type: 
  Country: None (occurrence: None)
  Receive Date: 20120327
  Receipt Date: 20120315
  Transmission Date: 20120608
  Serious: Yes (Hospitalization, Other)
  Sender: FDA-Public Use
  Company Number: US-ROCHE-1024008

PATIENT
  Sex: Female
  Weight: 68.1 kg

DRUGS (1)
  1. ACCUTANE [Suspect]
     Indication: ACNE
     Dates: start: 19820901, end: 19851001

REACTIONS (4)
  - PROCTITIS [None]
  - INJURY [None]
  - DEPRESSION [None]
  - COLITIS ULCERATIVE [None]
